FAERS Safety Report 8301521-1 (Version None)
Quarter: 2012Q2

REPORT INFORMATION
  Report Type: 
  Country: None (occurrence: None)
  Receive Date: 20120420
  Receipt Date: 20120417
  Transmission Date: 20120825
  Serious: Yes (Hospitalization)
  Sender: FDA-Public Use
  Company Number: PHHY2012US032475

PATIENT
  Age: 24 Year
  Sex: Female

DRUGS (1)
  1. PHENTERMINE [Suspect]
     Indication: OBESITY

REACTIONS (12)
  - ARTHRALGIA [None]
  - FATIGUE [None]
  - TENDERNESS [None]
  - MYALGIA [None]
  - ALANINE AMINOTRANSFERASE INCREASED [None]
  - ERYTHEMA [None]
  - PYREXIA [None]
  - ASPARTATE AMINOTRANSFERASE INCREASED [None]
  - SKIN PLAQUE [None]
  - BLOOD ALKALINE PHOSPHATASE INCREASED [None]
  - PANNICULITIS [None]
  - PRURITUS GENERALISED [None]
